FAERS Safety Report 6300532-5 (Version None)
Quarter: 2009Q3

REPORT INFORMATION
  Report Type: 
  Country: None (occurrence: None)
  Receive Date: 20090806
  Receipt Date: 20090306
  Transmission Date: 20100115
  Serious: No
  Sender: FDA-Public Use
  Company Number: US-ABBOTT-09P-163-0561734-00

PATIENT
  Sex: Female
  Weight: 59.02 kg

DRUGS (9)
  1. DEPAKOTE ER [Suspect]
     Indication: ABNORMAL BEHAVIOUR
     Route: 048
     Dates: start: 20080505
  2. FOLIPRO [Concomitant]
     Indication: BLOOD FOLATE DECREASED
     Route: 048
     Dates: start: 20090108, end: 20090306
  3. METAGLYCEMICS [Concomitant]
     Indication: CARDIOVASCULAR EVENT PROPHYLAXIS
     Dosage: UNKNOWN
     Route: 048
  4. QUIETIPINE [Concomitant]
     Indication: PSYCHOTIC DISORDER
     Route: 048
  5. PEG [Concomitant]
     Indication: CONSTIPATION
     Route: 048
  6. VITAMIN AND MINERALS [Concomitant]
     Indication: MEDICAL DIET
     Dosage: UNKNOWN
     Route: 048
  7. ACETAMINOPHEN W/ CODEINE [Concomitant]
     Indication: PAIN
     Dosage: UNKNOWN
     Route: 048
  8. BACITRACIN [Concomitant]
     Indication: DRUG USE FOR UNKNOWN INDICATION
     Dosage: UNKNOWN
     Route: 061
  9. CALCIUM CARBONATE [Concomitant]
     Indication: MINERAL SUPPLEMENTATION
     Dosage: UNKNOWN
     Route: 048

REACTIONS (3)
  - ABNORMAL BEHAVIOUR [None]
  - ANTICONVULSANT DRUG LEVEL BELOW THERAPEUTIC [None]
  - PHYSICAL ASSAULT [None]
